FAERS Safety Report 10056001 (Version 2)
Quarter: 2014Q2

REPORT INFORMATION
  Report Type: Spontaneous
  Country: US (occurrence: US)
  Receive Date: 20140403
  Receipt Date: 20140422
  Transmission Date: 20141212
  Serious: No
  Sender: FDA-Public Use
  Company Number: US-PFIZER INC-2014091262

PATIENT
  Age: 87 Year
  Sex: Male
  Weight: 61 kg

DRUGS (10)
  1. SUTENT [Suspect]
     Dosage: UNK
     Dates: start: 20140317
  2. SANDOSTATIN [Suspect]
     Dosage: UNK
     Dates: start: 20140325
  3. LISINOPRIL [Concomitant]
     Dosage: UNK
  4. CRESTOR [Concomitant]
     Dosage: UNK
  5. ASPIRIN [Concomitant]
     Dosage: 81 MG, UNK
  6. CENTRUM SILVER [Concomitant]
     Dosage: UNK
  7. VITAMIN D3 [Concomitant]
  8. PRILOSEC [Concomitant]
     Dosage: UNK
  9. GAVISCON [Concomitant]
     Dosage: UNK
  10. LACTAID [Concomitant]
     Dosage: UNK

REACTIONS (1)
  - Injection site pain [Recovering/Resolving]
